FAERS Safety Report 8890414 (Version 1)
Quarter: 2012Q4

REPORT INFORMATION
  Report Type: 
  Country: IT (occurrence: IT)
  Receive Date: 20121106
  Receipt Date: 20121106
  Transmission Date: 20130627
  Serious: Yes (Other)
  Sender: FDA-Public Use
  Company Number: IT-WATSON-2012-19087

PATIENT
  Age: 75 Year
  Sex: Female

DRUGS (1)
  1. PREDNISONE (UNKNOWN) [Suspect]
     Indication: TEMPORAL ARTERITIS
     Dosage: 60 mg, daily
     Route: 065

REACTIONS (2)
  - Dementia [Recovered/Resolved with Sequelae]
  - Memory impairment [Recovered/Resolved with Sequelae]
